FAERS Safety Report 21195128 (Version 1)
Quarter: 2022Q3

REPORT INFORMATION
  Report Type: Spontaneous
  Country: US (occurrence: None)
  Receive Date: 20220809
  Receipt Date: 20220809
  Transmission Date: 20221026
  Serious: No
  Sender: FDA-Public Use
  Company Number: None

PATIENT
  Age: 18 Year
  Sex: Female
  Weight: 54.43 kg

DRUGS (3)
  1. DUPIXENT [Suspect]
     Active Substance: DUPILUMAB
     Indication: Dermatitis allergic
     Dosage: FREQUENCY : ONCE;?
     Route: 058
     Dates: start: 20220729
  2. HYDROCORTISONE EXTERNAL OINTMENT [Concomitant]
  3. TRIAMCINOLONE ACETONIDE EXTERNAL OINTMENT [Concomitant]

REACTIONS (2)
  - Product administration error [None]
  - Incorrect dose administered [None]

NARRATIVE: CASE EVENT DATE: 20220729
